FAERS Safety Report 21381357 (Version 3)
Quarter: 2022Q4

REPORT INFORMATION
  Report Type: Spontaneous
  Country: US (occurrence: US)
  Receive Date: 20220927
  Receipt Date: 20221009
  Transmission Date: 20230113
  Serious: No
  Sender: FDA-Public Use
  Company Number: US-GLAXOSMITHKLINE-USCH2022035003

PATIENT
  Age: 46 Year
  Sex: Female

DRUGS (1)
  1. ADVIL PM [Suspect]
     Active Substance: DIPHENHYDRAMINE CITRATE\IBUPROFEN
     Indication: Sleep disorder
     Dosage: 1 DF, QD
     Dates: start: 202209

REACTIONS (3)
  - Dysgeusia [Unknown]
  - Retching [Unknown]
  - Product complaint [Unknown]

NARRATIVE: CASE EVENT DATE: 20220901
